FAERS Safety Report 7812998-X (Version None)
Quarter: 2011Q4

REPORT INFORMATION
  Report Type: 
  Country: None (occurrence: None)
  Receive Date: 20111013
  Receipt Date: 20111003
  Transmission Date: 20120403
  Serious: Yes (Other)
  Sender: FDA-Public Use
  Company Number: US-SANOFI-AVENTIS-2011SA065700

PATIENT
  Sex: Female

DRUGS (4)
  1. NOVOLOG [Concomitant]
  2. SOLOSTAR [Suspect]
  3. LANTUS [Suspect]
     Dosage: DOSE:55 UNIT(S)
     Route: 058
  4. ALL OTHER THERAPEUTIC PRODUCTS [Concomitant]

REACTIONS (3)
  - GALLBLADDER OPERATION [None]
  - PANCREATIC OPERATION [None]
  - BLOOD GLUCOSE INCREASED [None]
